FAERS Safety Report 7887081-8 (Version None)
Quarter: 2011Q4

REPORT INFORMATION
  Report Type: 
  Country: None (occurrence: None)
  Receive Date: 20111102
  Receipt Date: 20110714
  Transmission Date: 20120403
  Serious: No
  Sender: FDA-Public Use
  Company Number: US-AMGEN-USASP2011010199

PATIENT
  Age: 36 Year
  Sex: Male

DRUGS (1)
  1. ENBREL [Suspect]
     Indication: PSORIATIC ARTHROPATHY
     Dates: start: 20101215

REACTIONS (5)
  - HEADACHE [None]
  - UPPER RESPIRATORY TRACT CONGESTION [None]
  - PNEUMONIA [None]
  - NASAL CONGESTION [None]
  - COUGH [None]
